FAERS Safety Report 10891101 (Version 2)
Quarter: 2015Q1

REPORT INFORMATION
  Report Type: Spontaneous
  Country: MX (occurrence: MX)
  Receive Date: 20150305
  Receipt Date: 20150327
  Transmission Date: 20150721
  Serious: Yes (Other)
  Sender: FDA-Public Use
  Company Number: MX-BAYER-2015-029682

PATIENT
  Age: 61 Year
  Sex: Female

DRUGS (7)
  1. BECLOMETASONA [Concomitant]
     Indication: ASTHMA
     Dosage: UNK
  2. GLIBENCLAMIDA [Concomitant]
     Indication: TYPE 2 DIABETES MELLITUS
     Dosage: 5 MG, QD
  3. SALBUTAMOL [Concomitant]
     Active Substance: ALBUTEROL
     Indication: ASTHMA
     Dosage: UNK
  4. CAPTOPRIL. [Concomitant]
     Active Substance: CAPTOPRIL
     Indication: HYPERTENSION
     Dosage: 25 MG, TID
     Route: 048
  5. NEXAVAR [Suspect]
     Active Substance: SORAFENIB
     Indication: HEPATOCELLULAR CARCINOMA
     Dosage: 400 MG, BID
     Route: 048
     Dates: start: 20140507
  6. CARBAMAZEPINA [Concomitant]
     Active Substance: CARBAMAZEPINE
     Indication: INTERVERTEBRAL DISC PROTRUSION
     Dosage: UNK
  7. NEXAVAR [Suspect]
     Active Substance: SORAFENIB
     Indication: HEPATOCELLULAR CARCINOMA
     Dosage: 400 MG, QD
     Route: 048
     Dates: start: 201411

REACTIONS (10)
  - Arthralgia [None]
  - Atrophic vulvovaginitis [None]
  - Autoimmune disorder [None]
  - Bronchiectasis [None]
  - Palmar-plantar erythrodysaesthesia syndrome [Not Recovered/Not Resolved]
  - Pleural fibrosis [None]
  - Antinuclear antibody positive [Not Recovered/Not Resolved]
  - Seizure [None]
  - Mouth ulceration [None]
  - Vulvovaginal pruritus [None]

NARRATIVE: CASE EVENT DATE: 201406
